FAERS Safety Report 4333761-0 (Version None)
Quarter: 2004Q2

REPORT INFORMATION
  Report Type: 
  Country: None (occurrence: None)
  Receive Date: 20040402
  Receipt Date: 20040325
  Transmission Date: 20050107
  Serious: Yes (Hospitalization)
  Sender: FDA-Public Use
  Company Number: STA-AE-04-MTX-121

PATIENT
  Age: 71 Year
  Sex: Female

DRUGS (10)
  1. RHEUMATREX [Suspect]
     Indication: RHEUMATOID ARTHRITIS
     Dosage: 6 MG 1X PER 1 WK, ORAL
     Route: 048
     Dates: start: 20020527, end: 20040118
  2. REMICADE [Suspect]
     Indication: RHEUMATOID ARTHRITIS
     Dosage: 3 MG/KG/DAY, INTRAVENOUS
     Route: 042
     Dates: start: 20031104, end: 20031104
  3. INDOMETHACIN [Concomitant]
  4. MOHRUS (KETOPROFEN) [Concomitant]
  5. ANTACIDS (ANTACIDS) [Concomitant]
  6. ZANTAC [Concomitant]
  7. FOLIAMIN (FOLIC ACID) [Concomitant]
  8. RIMATIL (BUCILLAMINE) [Concomitant]
  9. REMICADE [Suspect]
     Dosage: 3 MG/KG/DAY, INTRAVENOUS
     Route: 042
     Dates: start: 20031118, end: 20031118
  10. REMICADE [Suspect]
     Dosage: 3 MG/KG/DAY, INTRAVENOUS
     Route: 042
     Dates: start: 20031217, end: 20031217

REACTIONS (2)
  - ABDOMINAL ABSCESS [None]
  - ERYTHEMA [None]
